FAERS Safety Report 9934164 (Version 1)
Quarter: 2014Q1

REPORT INFORMATION
  Report Type: Report from Study
  Country: JP (occurrence: US)
  Receive Date: 20140228
  Receipt Date: 20140228
  Transmission Date: 20141002
  Serious: Yes (Other)
  Sender: FDA-Public Use
  Company Number: JP-SA-2014SA023872

PATIENT
  Sex: 0

DRUGS (7)
  1. ANTI-THYMOCYTE GLOBULIN (RABBIT) [Suspect]
     Indication: IMMUNOSUPPRESSANT DRUG THERAPY
     Route: 065
  2. TACROLIMUS [Concomitant]
     Indication: IMMUNOSUPPRESSION
     Route: 065
  3. TACROLIMUS [Concomitant]
     Indication: INFECTION PROPHYLAXIS
     Route: 065
  4. MYCOPHENOLATE MOFETIL [Concomitant]
     Indication: IMMUNOSUPPRESSION
     Route: 048
  5. MYCOPHENOLATE MOFETIL [Concomitant]
     Indication: INFECTION PROPHYLAXIS
     Route: 048
  6. CORTICOSTEROIDS [Concomitant]
     Indication: IMMUNOSUPPRESSION
     Route: 065
  7. CORTICOSTEROIDS [Concomitant]
     Indication: INFECTION PROPHYLAXIS
     Route: 065

REACTIONS (1)
  - Renal cell carcinoma [Unknown]
